FAERS Safety Report 4615748-3 (Version None)
Quarter: 2005Q2

REPORT INFORMATION
  Report Type: 
  Country: None (occurrence: None)
  Receive Date: 20050310
  Receipt Date: 20041220
  Transmission Date: 20051028
  Serious: No
  Sender: FDA-Public Use
  Company Number: A03200404316

PATIENT
  Sex: Male

DRUGS (1)
  1. ELOXATIN [Suspect]
     Dosage: INTRAVENOUS NOS
     Route: 042
     Dates: start: 20041201, end: 20041201

REACTIONS (2)
  - ACCIDENTAL NEEDLE STICK [None]
  - OCCUPATIONAL EXPOSURE TO TOXIC AGENT [None]
